FAERS Safety Report 7564263-6 (Version None)
Quarter: 2011Q2

REPORT INFORMATION
  Report Type: 
  Country: None (occurrence: None)
  Receive Date: 20110622
  Receipt Date: 20110311
  Transmission Date: 20111010
  Serious: No
  Sender: FDA-Public Use
  Company Number: US-ALLERGAN-1103473US

PATIENT
  Age: 67 Year
  Sex: Male

DRUGS (2)
  1. ALPHAGAN P [Concomitant]
     Indication: GLAUCOMA
     Dosage: 1 GTT, BID
     Route: 047
  2. LUMIGAN [Suspect]
     Indication: GLAUCOMA
     Dosage: 1 GTT, QHS
     Route: 047
     Dates: start: 20110223, end: 20110301

REACTIONS (2)
  - PHOTOPHOBIA [None]
  - EYE PAIN [None]
